FAERS Safety Report 4696627-2 (Version None)
Quarter: 2005Q2

REPORT INFORMATION
  Report Type: 
  Country: None (occurrence: None)
  Receive Date: 20050620
  Receipt Date: 20050122
  Transmission Date: 20051028
  Serious: Yes (Other)
  Sender: FDA-Public Use
  Company Number: 200510579US

PATIENT
  Age: 65 Year
  Sex: Male
  Weight: 109.1 kg

DRUGS (8)
  1. LANTUS [Suspect]
     Indication: DIABETES MELLITUS NON-INSULIN-DEPENDENT
     Dosage: 40 U HS SC
     Route: 058
     Dates: start: 20040221
  2. LANTUS [Suspect]
     Indication: DIABETES MELLITUS NON-INSULIN-DEPENDENT
     Dosage: 40 U QAM
  3. METOFORMIN HYDROCHLORIDE (GLUCOPHAGE - SLOW RELEASE) [Concomitant]
  4. DIOVAN [Concomitant]
  5. GLICLAZIDE (DIAZIDE) [Concomitant]
  6. SOTALOL HCL [Concomitant]
  7. SIMVASTATIN [Concomitant]
  8. INSULIN INJECTION, ISOPHANE (NPH INSULIN) [Concomitant]

REACTIONS (4)
  - BLOOD GLUCOSE DECREASED [None]
  - CONFUSIONAL STATE [None]
  - HYPERGLYCAEMIA [None]
  - HYPERHIDROSIS [None]
